FAERS Safety Report 25225666 (Version 1)
Quarter: 2025Q2

REPORT INFORMATION
  Report Type: Spontaneous
  Country: CA (occurrence: CA)
  Receive Date: 20250422
  Receipt Date: 20250422
  Transmission Date: 20250717
  Serious: Yes (Disabling)
  Sender: CHEPLAPHARM
  Company Number: CA-AstraZeneca-CH-00847534A

PATIENT
  Age: 31 Year
  Sex: Female
  Weight: 99.79 kg

DRUGS (2)
  1. QUETIAPINE [Suspect]
     Active Substance: QUETIAPINE
     Indication: Premenstrual dysphoric disorder
     Dosage: 800 MILLIGRAM, QD?DAILY DOSE: 800 MILLIGRAM
     Route: 048
     Dates: start: 20240908, end: 20241224
  2. QUETIAPINE [Suspect]
     Active Substance: QUETIAPINE
     Indication: Mania
     Dosage: 800 MILLIGRAM, QD?DAILY DOSE: 800 MILLIGRAM
     Route: 048
     Dates: start: 20240908, end: 20241224

REACTIONS (11)
  - Condition aggravated [Not Recovered/Not Resolved]
  - Hyperacusis [Not Recovered/Not Resolved]
  - Neuralgia [Not Recovered/Not Resolved]
  - Anxiety [Not Recovered/Not Resolved]
  - Decreased activity [Unknown]
  - Pain in jaw [Unknown]
  - Neck pain [Unknown]
  - Ear pain [Unknown]
  - Tinnitus [Unknown]
  - Euphoric mood [Unknown]
  - Restlessness [Unknown]

NARRATIVE: CASE EVENT DATE: 20240908
